FAERS Safety Report 17270604 (Version 1)
Quarter: 2020Q1

REPORT INFORMATION
  Report Type: Spontaneous
  Country: ES (occurrence: ES)
  Receive Date: 20200114
  Receipt Date: 20200114
  Transmission Date: 20200409
  Serious: No
  Sender: FDA-Public Use
  Company Number: ES-ELI_LILLY_AND_COMPANY-ES201912010001

PATIENT
  Age: 20 Year
  Sex: Male
  Weight: 86 kg

DRUGS (3)
  1. OLAZAX [Concomitant]
     Indication: PSYCHOTIC DISORDER
     Dosage: 1 DOSAGE FORM, EACH EVENING
     Route: 065
     Dates: start: 20190903, end: 20190930
  2. CYMBALTA [Suspect]
     Active Substance: DULOXETINE HYDROCHLORIDE
     Indication: ANXIETY
     Dosage: UNK, UNKNOWN
     Route: 048
     Dates: start: 201811
  3. LORAZEPAM KERN PHARMA [Concomitant]
     Indication: ANXIETY
     Dosage: 1 DOSAGE FORM, EACH EVENING
     Route: 048
     Dates: start: 20190801, end: 20191001

REACTIONS (1)
  - Alanine aminotransferase increased [Recovering/Resolving]

NARRATIVE: CASE EVENT DATE: 2019
